FAERS Safety Report 8336635 (Version 2)
Quarter: 2015Q1

REPORT INFORMATION
  Report Type: Spontaneous
  Country: US (occurrence: US)
  Receive Date: 20120113
  Receipt Date: 20150128
  Transmission Date: 20150721
  Serious: Yes (Other)
  Sender: FDA-Public Use
  Company Number: US-ROCHE-784508

PATIENT
  Sex: Male
  Weight: 68.1 kg

DRUGS (2)
  1. ACCUTANE [Suspect]
     Active Substance: ISOTRETINOIN
     Indication: ACNE
     Dosage: DOSE: ALTERNATIVELY 2 CAPSULES DAILY AND 1 CAPSULE DAILY
     Route: 048
     Dates: start: 19900116, end: 19900607
  2. ACCUTANE [Suspect]
     Active Substance: ISOTRETINOIN
     Route: 048
     Dates: start: 19940107, end: 19940601

REACTIONS (6)
  - Inflammatory bowel disease [Unknown]
  - Intestinal haemorrhage [Unknown]
  - Stress [Unknown]
  - Colitis ulcerative [Unknown]
  - Cholangitis sclerosing [Unknown]
  - Emotional distress [Unknown]

NARRATIVE: CASE EVENT DATE: 1993
